FAERS Safety Report 12832498 (Version 4)
Quarter: 2018Q3

REPORT INFORMATION
  Report Type: Spontaneous
  Country: US (occurrence: US)
  Receive Date: 20161010
  Receipt Date: 20180828
  Transmission Date: 20181010
  Serious: No
  Sender: FDA-Public Use
  Company Number: US-JAZZ-2016-US-013177

PATIENT
  Age: 56 Year
  Sex: Male

DRUGS (17)
  1. AMITRIPTYLINE HCL [Concomitant]
     Active Substance: AMITRIPTYLINE
  2. AMLODIPINE BESILATE W/OLMESARTAN MEDOXOMIL [Concomitant]
  3. GABAPENTIN. [Concomitant]
     Active Substance: GABAPENTIN
  4. COCONUT OIL [Concomitant]
     Active Substance: COCONUT OIL
  5. CHLORDIAZEPOXIDE HYDROCHLORIDE/CLIDINIUM BROM [Concomitant]
  6. ALPRAZOLAM. [Concomitant]
     Active Substance: ALPRAZOLAM
  7. ASPIRIN 81 [Concomitant]
     Active Substance: ASPIRIN
  8. ZIPSOR [Concomitant]
     Active Substance: DICLOFENAC POTASSIUM
  9. TRIAZOLAM. [Concomitant]
     Active Substance: TRIAZOLAM
  10. ADDERALL [Concomitant]
     Active Substance: AMPHETAMINE ASPARTATE\AMPHETAMINE SULFATE\DEXTROAMPHETAMINE SACCHARATE\DEXTROAMPHETAMINE SULFATE
  11. XYREM [Suspect]
     Active Substance: SODIUM OXYBATE
     Dosage: 4.5 G, BID
     Route: 048
     Dates: start: 201607
  12. CAMBIA [Concomitant]
     Active Substance: DICLOFENAC POTASSIUM
  13. FISH OIL [Concomitant]
     Active Substance: FISH OIL
  14. ROPINIROLE HCL [Concomitant]
     Active Substance: ROPINIROLE HYDROCHLORIDE
  15. XYREM [Suspect]
     Active Substance: SODIUM OXYBATE
     Indication: HYPERSOMNIA
     Dosage: 2.25 G, BID
     Route: 048
     Dates: start: 201607, end: 201607
  16. XYREM [Suspect]
     Active Substance: SODIUM OXYBATE
     Indication: NARCOLEPSY
     Dosage: 3 G, BID
     Route: 048
     Dates: start: 201607, end: 201607
  17. NUVIGIL [Suspect]
     Active Substance: ARMODAFINIL
     Indication: PRODUCT USED FOR UNKNOWN INDICATION
     Dosage: UNK
     Dates: end: 20160630

REACTIONS (8)
  - Headache [Not Recovered/Not Resolved]
  - Fatigue [Not Recovered/Not Resolved]
  - Wrong technique in product usage process [Unknown]
  - Nausea [Unknown]
  - Initial insomnia [Not Recovered/Not Resolved]
  - Sleep-related eating disorder [Unknown]
  - Feeling abnormal [Not Recovered/Not Resolved]
  - Somnambulism [Recovered/Resolved]

NARRATIVE: CASE EVENT DATE: 201607
